FAERS Safety Report 7920658-X (Version None)
Quarter: 2011Q4

REPORT INFORMATION
  Report Type: 
  Country: None (occurrence: None)
  Receive Date: 20111117
  Receipt Date: 20111110
  Transmission Date: 20120403
  Serious: Yes (Disabling)
  Sender: FDA-Public Use
  Company Number: GB-SHIRE-ALL1-2011-04396

PATIENT
  Sex: Male

DRUGS (1)
  1. REPLAGAL [Suspect]
     Indication: FABRY'S DISEASE
     Dosage: 21 MG, 1X/2WKS
     Route: 041

REACTIONS (3)
  - PAIN [None]
  - FALL [None]
  - TRAUMATIC FRACTURE [None]
